FAERS Safety Report 15191739 (Version 2)
Quarter: 2018Q3

REPORT INFORMATION
  Report Type: Report from Study
  Country: JP (occurrence: JP)
  Receive Date: 20180724
  Receipt Date: 20180809
  Transmission Date: 20181010
  Serious: Yes (Hospitalization)
  Sender: FDA-Public Use
  Company Number: JP-DSJP-DSJ-2018-127720

PATIENT

DRUGS (3)
  1. EDOXABAN [Suspect]
     Active Substance: EDOXABAN TOSYLATE
     Indication: ATRIAL FIBRILLATION
     Dosage: 60 MG, QD
     Route: 048
     Dates: start: 20160709, end: 20180114
  2. EDOXABAN [Suspect]
     Active Substance: EDOXABAN TOSYLATE
     Dosage: 60 MG, QD
     Route: 048
     Dates: start: 20180407
  3. TENELIA [Concomitant]
     Active Substance: TENELIGLIPTIN
     Dosage: 20MG/DAY
     Route: 048

REACTIONS (2)
  - Hepatocellular carcinoma [Recovered/Resolved]
  - Traumatic liver injury [Recovered/Resolved]

NARRATIVE: CASE EVENT DATE: 20180115
